FAERS Safety Report 21838354 (Version 1)
Quarter: 2023Q1

REPORT INFORMATION
  Report Type: Report from Study
  Country: US (occurrence: US)
  Receive Date: 20230109
  Receipt Date: 20230109
  Transmission Date: 20230417
  Serious: Yes (Other)
  Sender: FDA-Public Use
  Company Number: US-TEVA-2023-US-2842589

PATIENT
  Sex: Male

DRUGS (1)
  1. COPAXONE [Suspect]
     Active Substance: GLATIRAMER ACETATE
     Indication: Product used for unknown indication
     Dosage: 40 MG
     Route: 065
     Dates: start: 20040630

REACTIONS (10)
  - Myocardial infarction [Unknown]
  - Injection site thrombosis [Unknown]
  - Injection site induration [Unknown]
  - Injection site discomfort [Unknown]
  - Hepatic steatosis [Unknown]
  - Cardiac disorder [Unknown]
  - Injection site pain [Unknown]
  - Scab [Unknown]
  - Injection site bruising [Unknown]
  - Treatment noncompliance [Unknown]
